FAERS Safety Report 9032578 (Version 1)
Quarter: 2013Q1

REPORT INFORMATION
  Report Type: Spontaneous
  Country: US (occurrence: US)
  Receive Date: 20130122
  Receipt Date: 20130122
  Transmission Date: 20140127
  Serious: No
  Sender: FDA-Public Use
  Company Number: US-PFIZER INC-2013023350

PATIENT
  Sex: Female
  Weight: 52.15 kg

DRUGS (1)
  1. VERAPAMIL HCL [Suspect]
     Indication: BLOOD PRESSURE ABNORMAL
     Dosage: 240 MG, DAILY

REACTIONS (1)
  - Blood pressure inadequately controlled [Unknown]
